FAERS Safety Report 7605560-5 (Version None)
Quarter: 2011Q3

REPORT INFORMATION
  Report Type: 
  Country: None (occurrence: None)
  Receive Date: 20110713
  Receipt Date: 20110701
  Transmission Date: 20111222
  Serious: Yes (Life-Threatening, Hospitalization)
  Sender: FDA-Public Use
  Company Number: US-BAYER-201038133NA

PATIENT
  Age: 18 Year
  Sex: Female
  Weight: 111.57 kg

DRUGS (11)
  1. DROSPIRENONE AND ETHINYL ESTRADIOL [Suspect]
     Indication: PRODUCT USED FOR UNKNOWN INDICATION
     Dosage: UNK
     Dates: start: 20080111
  2. YAZ [Suspect]
     Dosage: UNK
     Dates: start: 20090422
  3. YASMIN [Suspect]
     Dosage: UNK
     Dates: start: 20050511, end: 20060531
  4. YAZ [Suspect]
     Dosage: UNK
     Dates: start: 20090529
  5. YASMIN [Suspect]
     Indication: PRODUCT USED FOR UNKNOWN INDICATION
     Dosage: UNK UNK, QD
     Route: 048
     Dates: start: 20050329, end: 20080111
  6. DROSPIRENONE AND ETHINYL ESTRADIOL [Suspect]
     Dosage: UNK
     Dates: start: 20090401, end: 20090529
  7. ALBUTEROL SULFATE AUTOHALER [Concomitant]
     Indication: ASTHMA
     Dosage: UNK
     Dates: start: 20040101, end: 20090101
  8. PREVACID [Concomitant]
  9. YAZ [Suspect]
     Indication: PRODUCT USED FOR UNKNOWN INDICATION
     Dosage: UNK UNK, QD
     Route: 048
     Dates: start: 20080111
  10. SINGULAIR [Concomitant]
  11. YAZ [Suspect]
     Dosage: UNK
     Dates: start: 20090401

REACTIONS (4)
  - CHOLELITHIASIS [None]
  - CHOLECYSTITIS [None]
  - ABDOMINAL PAIN [None]
  - CHOLECYSTECTOMY [None]
